FAERS Safety Report 4751625-5 (Version None)
Quarter: 2005Q3

REPORT INFORMATION
  Report Type: 
  Country: None (occurrence: None)
  Receive Date: 20050824
  Receipt Date: 20050809
  Transmission Date: 20060218
  Serious: Yes (Other)
  Sender: FDA-Public Use
  Company Number: AU-JNJFOC-20050404025

PATIENT
  Sex: Female

DRUGS (16)
  1. RISPERDAL CONSTA [Suspect]
     Indication: SCHIZOPHRENIA
     Route: 030
  2. ARIPRIPRAZOL [Suspect]
     Route: 048
  3. ARIPRIPRAZOL [Suspect]
     Indication: DRUG USE FOR UNKNOWN INDICATION
     Route: 048
  4. QUETIAPINE FUMARATE [Concomitant]
     Route: 048
  5. CHLORPROMAZINE [Concomitant]
     Route: 048
  6. DIAZEPAM [Concomitant]
     Route: 048
  7. BENZHEXOL [Concomitant]
     Route: 048
  8. MULTI-VITAMIN [Concomitant]
     Route: 048
  9. MULTI-VITAMIN [Concomitant]
     Route: 048
  10. MULTI-VITAMIN [Concomitant]
     Route: 048
  11. MULTI-VITAMIN [Concomitant]
     Route: 048
  12. MULTI-VITAMIN [Concomitant]
     Route: 048
  13. MULTI-VITAMIN [Concomitant]
     Route: 048
  14. MULTI-VITAMIN [Concomitant]
     Route: 048
  15. MULTI-VITAMIN [Concomitant]
     Route: 048
  16. FOLIC ACID [Concomitant]
     Route: 048

REACTIONS (2)
  - ABORTION SPONTANEOUS [None]
  - DRUG EXPOSURE DURING PREGNANCY [None]
